FAERS Safety Report 5443307-1 (Version None)
Quarter: 2007Q3

REPORT INFORMATION
  Report Type: 
  Country: None (occurrence: None)
  Receive Date: 20070831
  Receipt Date: 20070827
  Transmission Date: 20080115
  Serious: Yes (Other)
  Sender: FDA-Public Use
  Company Number: JPI-P-001660

PATIENT
  Age: 60 Year
  Sex: Male

DRUGS (5)
  1. XYREM [Suspect]
     Indication: CATAPLEXY
     Dosage: 4.5 MG (2.25 GM, 2 IN 1 D), ORAL
     Route: 048
     Dates: start: 20070309, end: 20070411
  2. PRAVASTATIN [Suspect]
     Indication: DRUG USE FOR UNKNOWN INDICATION
     Dosage: 40 MG, ORAL
  3. MODAFINIL [Concomitant]
  4. HYDROCHLOROTHIAZIDE (CO-DIOVAN) [Concomitant]
  5. ACETYLSALICYLATE LYSINE (ACETYSALICYLATE LYSINE) [Concomitant]

REACTIONS (7)
  - BLOOD CREATINE PHOSPHOKINASE INCREASED [None]
  - CRYING [None]
  - DRUG INEFFECTIVE [None]
  - FAECAL INCONTINENCE [None]
  - INAPPROPRIATE SCHEDULE OF DRUG ADMINISTRATION [None]
  - TREATMENT NONCOMPLIANCE [None]
  - UNDERDOSE [None]
